FAERS Safety Report 8351614-8 (Version None)
Quarter: 2012Q2

REPORT INFORMATION
  Report Type: 
  Country: None (occurrence: None)
  Receive Date: 20120511
  Receipt Date: 20120503
  Transmission Date: 20120825
  Serious: No
  Sender: FDA-Public Use
  Company Number: US-BIOGENIDEC-2012BI002585

PATIENT
  Sex: Female

DRUGS (1)
  1. TYSABRI [Suspect]
     Indication: MULTIPLE SCLEROSIS
     Route: 042
     Dates: start: 20111007, end: 20120101

REACTIONS (10)
  - PAIN [None]
  - RASH [None]
  - MULTIPLE SCLEROSIS [None]
  - BURNING SENSATION [None]
  - HYPOAESTHESIA [None]
  - HYPERTENSION [None]
  - HYPERSENSITIVITY [None]
  - HEMIPARESIS [None]
  - UNDERDOSE [None]
  - DRUG INEFFECTIVE [None]
